FAERS Safety Report 13257336 (Version 2)
Quarter: 2017Q1

REPORT INFORMATION
  Report Type: Spontaneous
  Country: PT (occurrence: PT)
  Receive Date: 20170221
  Receipt Date: 20170221
  Transmission Date: 20170428
  Serious: Yes (Other)
  Sender: FDA-Public Use
  Company Number: ALCN2017PT001434

PATIENT
  Age: 32 Year
  Sex: Male

DRUGS (2)
  1. DORZOLAMIDE [Suspect]
     Active Substance: DORZOLAMIDE
     Indication: OEDEMA
     Route: 061
  2. TRIAMCINOLONE ACETONIDE. [Suspect]
     Active Substance: TRIAMCINOLONE ACETONIDE
     Indication: CYSTOID MACULAR OEDEMA
     Route: 031

REACTIONS (5)
  - Cataract [Unknown]
  - Ocular hypertension [Unknown]
  - Cystoid macular oedema [Unknown]
  - Disease recurrence [Unknown]
  - Therapy non-responder [None]
